FAERS Safety Report 9983194 (Version 2)
Quarter: 2014Q2

REPORT INFORMATION
  Report Type: Spontaneous
  Country: AU (occurrence: AU)
  Receive Date: 20140307
  Receipt Date: 20140604
  Transmission Date: 20141212
  Serious: Yes (Other)
  Sender: FDA-Public Use
  Company Number: AU-MERCK-1403AUS002516

PATIENT
  Sex: Male

DRUGS (1)
  1. ZOLINZA [Suspect]
     Dosage: UNK
     Route: 048

REACTIONS (1)
  - Pancytopenia [Unknown]
